FAERS Safety Report 8810247 (Version 1)
Quarter: 2012Q4

REPORT INFORMATION
  Report Type: 
  Country: US (occurrence: US)
  Receive Date: 20120926
  Receipt Date: 20120926
  Transmission Date: 20130627
  Serious: No
  Sender: FDA-Public Use
  Company Number: US-009507513-1209USA009677

PATIENT
  Sex: Female

DRUGS (2)
  1. ZOCOR [Suspect]
     Dosage: UNK mg, UNK,1/2 Tablet
     Route: 048
  2. LIPITOR [Concomitant]
     Dosage: 40 mg, UNK

REACTIONS (1)
  - Drug ineffective [Unknown]
